FAERS Safety Report 18771505 (Version 3)
Quarter: 2024Q4

REPORT INFORMATION
  Report Type: Spontaneous
  Country: US (occurrence: US)
  Receive Date: 20210122
  Receipt Date: 20241030
  Transmission Date: 20250114
  Serious: No
  Sender: PIRAMAL
  Company Number: US-PCCINC-2019-PEL-000448

PATIENT

DRUGS (2)
  1. GABLOFEN [Suspect]
     Active Substance: BACLOFEN
     Indication: Muscle spasticity
     Dosage: 632.7 MICROGRAM, PER DAY
     Route: 037
  2. GABLOFEN [Suspect]
     Active Substance: BACLOFEN
     Indication: Cerebral palsy
     Dosage: 765.4 MCG/DAY
     Route: 037

REACTIONS (4)
  - Muscle spasticity [Unknown]
  - Withdrawal syndrome [Unknown]
  - Device malfunction [Unknown]
  - Device infusion issue [Unknown]

NARRATIVE: CASE EVENT DATE: 20191118
